FAERS Safety Report 4280457-X (Version None)
Quarter: 2004Q1

REPORT INFORMATION
  Report Type: 
  Country: None (occurrence: None)
  Receive Date: 20040128
  Receipt Date: 20040128
  Transmission Date: 20041129
  Serious: Yes (Hospitalization)
  Sender: FDA-Public Use
  Company Number: None

PATIENT
  Sex: Male
  Weight: 54.4316 kg

DRUGS (2)
  1. PROCRIT [Suspect]
     Indication: ANAEMIA
     Dosage: 40,000 IU SQ/WEEK 60,000IU SQ
     Dates: start: 20021018, end: 20021107
  2. PROCRIT [Suspect]
     Indication: ANAEMIA
     Dosage: 40,000 IU SQ/WEEK 60,000IU SQ
     Dates: start: 20021115

REACTIONS (2)
  - BLOOD PRESSURE DECREASED [None]
  - SUPRAVENTRICULAR TACHYCARDIA [None]
